FAERS Safety Report 5146474-2 (Version None)
Quarter: 2006Q4

REPORT INFORMATION
  Report Type: 
  Country: None (occurrence: None)
  Receive Date: 20061102
  Receipt Date: 20061017
  Transmission Date: 20070319
  Serious: Yes (Hospitalization)
  Sender: FDA-Public Use
  Company Number: US-2006-024878

PATIENT
  Age: 41 Year
  Sex: Female
  Weight: 65 kg

DRUGS (9)
  1. BETASERON [Suspect]
     Indication: RELAPSING-REMITTING MULTIPLE SCLEROSIS
     Dosage: 8 MUI, EVERY 2D, SUBCUTANEOUS
     Route: 058
     Dates: start: 20060720
  2. SYNTHROID [Concomitant]
  3. VITAMIN B-12 [Concomitant]
  4. POTASSIUM (POTASSIUM) [Concomitant]
  5. PEPCID [Concomitant]
  6. AMANTADINE HCL [Concomitant]
  7. WELLBURTIN (BUPROPION HYDROCHLORIDE) [Concomitant]
  8. KLONOPIN [Concomitant]
  9. ADVIL [Concomitant]

REACTIONS (9)
  - ABDOMINAL PAIN UPPER [None]
  - ANGINA UNSTABLE [None]
  - BACK PAIN [None]
  - BLOOD PRESSURE DIASTOLIC DECREASED [None]
  - DYSPNOEA [None]
  - FLANK PAIN [None]
  - HYPOAESTHESIA [None]
  - LOCAL SWELLING [None]
  - PRURITUS [None]
